FAERS Safety Report 6808946-1 (Version None)
Quarter: 2010Q2

REPORT INFORMATION
  Report Type: 
  Country: None (occurrence: None)
  Receive Date: 20100630
  Receipt Date: 20091101
  Transmission Date: 20101027
  Serious: No
  Sender: FDA-Public Use
  Company Number: US-PFIZER INC-2009263682

PATIENT
  Sex: Female
  Weight: 125.64 kg

DRUGS (6)
  1. TIKOSYN [Suspect]
     Indication: ATRIAL FIBRILLATION
     Dosage: 0.5 MG, 2X/DAY
     Route: 048
     Dates: start: 20060101
  2. TIKOSYN [Suspect]
     Indication: ATRIAL FLUTTER
  3. PRILOSEC [Concomitant]
     Indication: GASTROOESOPHAGEAL REFLUX DISEASE
  4. CLARITIN [Concomitant]
     Indication: HYPERSENSITIVITY
  5. IMURAN [Concomitant]
     Indication: ARTHRITIS
  6. PREDNISONE [Concomitant]
     Indication: ARTHRITIS

REACTIONS (1)
  - RHEUMATOID ARTHRITIS [None]
